FAERS Safety Report 8490075-5 (Version None)
Quarter: 2012Q2

REPORT INFORMATION
  Report Type: 
  Country: None (occurrence: None)
  Receive Date: 20120626
  Receipt Date: 20120613
  Transmission Date: 20120825
  Serious: Yes (Other)
  Sender: FDA-Public Use
  Company Number: US-INDICUS PHARMA-000003

PATIENT
  Age: 56 Year
  Sex: Female

DRUGS (2)
  1. LETROZOLE [Suspect]
     Indication: BREAST CANCER
     Dates: end: 20111115
  2. ANASTROZOLE [Suspect]
     Indication: BREAST CANCER
     Dates: start: 20110820

REACTIONS (15)
  - ANHEDONIA [None]
  - DEPRESSION [None]
  - ANGER [None]
  - FEELING GUILTY [None]
  - HOT FLUSH [None]
  - PAIN [None]
  - SUICIDAL IDEATION [None]
  - NEGATIVE THOUGHTS [None]
  - FEELING OF DESPAIR [None]
  - MOOD SWINGS [None]
  - ASTHENIA [None]
  - IRRITABILITY [None]
  - DISTURBANCE IN ATTENTION [None]
  - ANXIETY [None]
  - MEMORY IMPAIRMENT [None]
